FAERS Safety Report 7596050-7 (Version None)
Quarter: 2011Q3

REPORT INFORMATION
  Report Type: 
  Country: None (occurrence: None)
  Receive Date: 20110707
  Receipt Date: 20110628
  Transmission Date: 20111222
  Serious: Yes (Hospitalization, Other)
  Sender: FDA-Public Use
  Company Number: JP-PFIZER INC-2011130399

PATIENT
  Age: 62 Year
  Sex: Male

DRUGS (9)
  1. CANDESARTAN CILEXETIL [Concomitant]
     Dosage: 8 MG, 1X/DAY
     Route: 048
  2. LASIX [Concomitant]
     Dosage: 20 MG, 1X/DAY
     Route: 048
  3. ALLOPURINOL [Concomitant]
     Dosage: UNK
     Route: 048
  4. RABEPRAZOLE SODIUM [Concomitant]
     Dosage: 10 MG, 1X/DAY
     Route: 048
  5. SULFASALAZINE [Suspect]
     Dosage: 3 G, 1X/DAY
     Route: 048
     Dates: start: 20110516, end: 20110613
  6. SPIRONOLACTONE [Concomitant]
     Dosage: 25 MG, 1X/DAY
     Route: 048
  7. LENDORMIN [Concomitant]
     Dosage: UNK
     Route: 048
  8. FAMOTIDINE [Concomitant]
     Dosage: 20 MG, 1X/DAY
     Route: 048
  9. MUCOSTA [Concomitant]
     Dosage: UNK
     Route: 048

REACTIONS (5)
  - HEPATIC FUNCTION ABNORMAL [None]
  - URINE AMYLASE INCREASED [None]
  - DECREASED APPETITE [None]
  - NAUSEA [None]
  - DRUG ERUPTION [None]
